FAERS Safety Report 16561482 (Version 3)
Quarter: 2020Q3

REPORT INFORMATION
  Report Type: Spontaneous
  Country: FR (occurrence: FR)
  Receive Date: 20190711
  Receipt Date: 20200910
  Transmission Date: 20201102
  Serious: Yes (Death, Hospitalization)
  Sender: FDA-Public Use
  Company Number: FR-009507513-1907FRA004680

PATIENT
  Age: 69 Year
  Sex: Male
  Weight: 70.4 kg

DRUGS (9)
  1. ETHAMBUTOL [Suspect]
     Active Substance: ETHAMBUTOL HYDROCHLORIDE
     Indication: TUBERCULOSIS
     Dosage: 1.5 GRAM, QD
     Route: 048
     Dates: start: 20190314, end: 20190426
  2. KEYTRUDA [Suspect]
     Active Substance: PEMBROLIZUMAB
     Indication: MALIGNANT MELANOMA
     Dosage: 2 MILLIGRAM/KILOGRAM, Q3W
     Route: 042
     Dates: start: 20181112, end: 20190207
  3. CORTANCYL [Concomitant]
     Active Substance: PREDNISONE
     Indication: MALIGNANT MELANOMA
     Dosage: 10 MILLIGRAM, QD
     Route: 048
     Dates: start: 20190402
  4. ALLOPURINOL. [Concomitant]
     Active Substance: ALLOPURINOL
     Indication: HYPERURICAEMIA
     Dosage: 200 MILLIGRAM, QD
     Route: 048
     Dates: end: 20190426
  5. LANSOPRAZOLE. [Concomitant]
     Active Substance: LANSOPRAZOLE
     Indication: HYPERCHLORHYDRIA
     Dosage: 30 MILLIGRAM, QD
     Route: 048
     Dates: start: 20190316, end: 20190426
  6. RIFATER [Suspect]
     Active Substance: ISONIAZID\PYRAZINAMIDE\RIFAMPIN
     Indication: TUBERCULOSIS
     Dosage: 6 DOSAGE FORM, QD
     Route: 048
     Dates: start: 20190314, end: 20190426
  7. DIAMICRON [Concomitant]
     Active Substance: GLICLAZIDE
     Indication: TYPE 2 DIABETES MELLITUS
     Dosage: 1 DOSAGE FORM, QD; FORMULATION: SCORED MODIFIED?RELEASE TABLET
     Route: 048
     Dates: start: 20181112, end: 20190426
  8. METFORMIN [Concomitant]
     Active Substance: METFORMIN HYDROCHLORIDE
     Indication: TYPE 2 DIABETES MELLITUS
     Dosage: 3 GRAM, QD
     Route: 048
     Dates: end: 20190426
  9. CANDESARTAN CILEXETIL. [Concomitant]
     Active Substance: CANDESARTAN CILEXETIL
     Indication: HYPERTENSION
     Dosage: 16 MILLIGRAM, QD
     Route: 048
     Dates: end: 20190426

REACTIONS (5)
  - Rash maculo-papular [Fatal]
  - Jaundice [Fatal]
  - Cholestatic liver injury [Fatal]
  - Hepatocellular injury [Fatal]
  - Generalised oedema [Fatal]

NARRATIVE: CASE EVENT DATE: 20190314
